FAERS Safety Report 9302030 (Version 4)
Quarter: 2013Q3

REPORT INFORMATION
  Report Type: Spontaneous
  Country: US (occurrence: US)
  Receive Date: 20130521
  Receipt Date: 20130903
  Transmission Date: 20140515
  Serious: Yes (Hospitalization, Other)
  Sender: FDA-Public Use
  Company Number: US-BAXTER-2013BAX018686

PATIENT
  Age: 65 Year
  Sex: Male

DRUGS (2)
  1. DIANEAL LOW CALCIUM [Suspect]
     Indication: PERITONEAL DIALYSIS
     Route: 033
     Dates: start: 2012
  2. DIANEAL LOW CALCIUM [Suspect]
     Route: 033

REACTIONS (9)
  - Renal failure chronic [Recovered/Resolved]
  - Parathyroid gland enlargement [Recovered/Resolved]
  - Hernia [Unknown]
  - Inguinal hernia [Recovered/Resolved]
  - Food poisoning [Unknown]
  - Weight decreased [Unknown]
  - Constipation [Unknown]
  - Vomiting [Recovered/Resolved]
  - Dehydration [Recovered/Resolved]
